FAERS Safety Report 13446156 (Version 1)
Quarter: 2017Q2

REPORT INFORMATION
  Report Type: Spontaneous
  Country: AU (occurrence: AU)
  Receive Date: 20170417
  Receipt Date: 20170417
  Transmission Date: 20170830
  Serious: Yes (Hospitalization, Other)
  Sender: FDA-Public Use
  Company Number: AU-009507513-1704AUS006170

PATIENT
  Age: 70 Year
  Sex: Male

DRUGS (9)
  1. MIRTAZAPINE GA [Suspect]
     Active Substance: MIRTAZAPINE
     Dosage: 15 MG,QHS (NOCTE)
     Route: 065
  2. DIGOXIN. [Suspect]
     Active Substance: DIGOXIN
     Dosage: 125 MICROGRAM, QD
     Route: 065
  3. METOPROLOL. [Suspect]
     Active Substance: METOPROLOL
     Dosage: 12.5 MG, TWICE DAILY
     Route: 065
  4. VENLAFAXINE HYDROCHLORIDE. [Suspect]
     Active Substance: VENLAFAXINE HYDROCHLORIDE
     Dosage: 300 MG, QD
     Route: 065
  5. COMTAN [Suspect]
     Active Substance: ENTACAPONE
     Dosage: 200 MG, TWICE DAILY
     Route: 065
  6. OLANZAPINE. [Suspect]
     Active Substance: OLANZAPINE
     Dosage: 15 MG, EVERY DAY (IN TWO DIVIDED DOSE)
     Route: 065
  7. CLOZARIL [Suspect]
     Active Substance: CLOZAPINE
     Route: 065
  8. CARBIDOPA (+) LEVODOPA [Suspect]
     Active Substance: CARBIDOPA\LEVODOPA
     Dosage: UNK UNK, QID
     Route: 065
  9. ROTIGOTINE [Suspect]
     Active Substance: ROTIGOTINE
     Dosage: 2 MG, QD
     Route: 065

REACTIONS (13)
  - Myocardial infarction [Unknown]
  - Ventricular hypokinesia [Unknown]
  - Protein total decreased [Unknown]
  - Blood chloride increased [Recovered/Resolved]
  - Lymphocyte count decreased [Unknown]
  - Ejection fraction decreased [Unknown]
  - Blood chloride increased [Recovered/Resolved]
  - Dilatation atrial [Unknown]
  - Atrial fibrillation [Unknown]
  - Neutrophil count increased [Recovered/Resolved]
  - Blood lactate dehydrogenase increased [Recovered/Resolved]
  - Tricuspid valve sclerosis [Unknown]
  - Mitral valve sclerosis [Unknown]

NARRATIVE: CASE EVENT DATE: 20160908
